FAERS Safety Report 4560912-5 (Version None)
Quarter: 2005Q1

REPORT INFORMATION
  Report Type: 
  Country: None (occurrence: None)
  Receive Date: 20050126
  Receipt Date: 20040105
  Transmission Date: 20050727
  Serious: No
  Sender: FDA-Public Use
  Company Number: US-BRISTOL-MYERS SQUIBB COMPANY-12469482

PATIENT
  Age: 80 Year
  Sex: Female
  Weight: 59 kg

DRUGS (5)
  1. METFORMIN HCL [Suspect]
     Indication: DIABETES MELLITUS
     Route: 048
  2. FOSAMAX [Concomitant]
  3. LIPITOR [Concomitant]
  4. ALTACE [Concomitant]
  5. GLUCOTROL [Concomitant]

REACTIONS (1)
  - DYSPEPSIA [None]
